FAERS Safety Report 14368872 (Version 1)
Quarter: 2018Q1

REPORT INFORMATION
  Report Type: Spontaneous
  Country: US (occurrence: US)
  Receive Date: 20180109
  Receipt Date: 20180109
  Transmission Date: 20180509
  Serious: Yes (Other)
  Sender: FDA-Public Use
  Company Number: US-BEH-2018086523

PATIENT
  Age: 61 Year
  Sex: Female

DRUGS (13)
  1. PREDNISONE                         /00044702/ [Suspect]
     Active Substance: PREDNISONE
     Route: 065
  2. FLUCONAZOLE ACTAVIS [Concomitant]
     Active Substance: FLUCONAZOLE
     Route: 065
  3. DICLOFENAC SODIUM. [Concomitant]
     Active Substance: DICLOFENAC SODIUM
     Route: 065
  4. DIFLUCAN [Concomitant]
     Active Substance: FLUCONAZOLE
     Dosage: 100 MG
     Route: 065
  5. CO Q 10                            /00517201/ [Concomitant]
     Route: 065
  6. MUCINEX [Concomitant]
     Active Substance: GUAIFENESIN
     Dosage: 1200 MG (TB1)
     Route: 065
  7. PROLIA [Concomitant]
     Active Substance: DENOSUMAB
     Route: 065
  8. HYDROCODONE                        /00060002/ [Concomitant]
     Active Substance: HYDROCODONE
     Dosage: 10-325 MG
     Route: 065
  9. LIVALO [Concomitant]
     Active Substance: PITAVASTATIN CALCIUM
     Dosage: 2 MG
     Route: 065
  10. HIZENTRA [Suspect]
     Active Substance: HUMAN IMMUNOGLOBULIN G
     Indication: COLD URTICARIA
     Dosage: 16 G, QW (EVERY 7 DAYS)
     Route: 058
  11. AMOXICILLIN. [Suspect]
     Active Substance: AMOXICILLIN
     Dosage: 875 MG, UNK
     Route: 065
  12. DOXYCYCLINE HCL SAWAI [Concomitant]
     Dosage: 100 MG
     Route: 065
  13. HIZENTRA [Suspect]
     Active Substance: HUMAN IMMUNOGLOBULIN G
     Indication: URTICARIA THERMAL
     Dosage: UNK
     Route: 058

REACTIONS (7)
  - Respiratory disorder [Unknown]
  - Pulmonary congestion [Recovering/Resolving]
  - Vertigo [Unknown]
  - Chest injury [Recovered/Resolved]
  - Cough [Recovered/Resolved]
  - Painful respiration [Recovered/Resolved]
  - Oral candidiasis [Not Recovered/Not Resolved]

NARRATIVE: CASE EVENT DATE: 201801
